FAERS Safety Report 21179680 (Version 1)
Quarter: 2022Q3

REPORT INFORMATION
  Report Type: Spontaneous
  Country: US (occurrence: US)
  Receive Date: 20220805
  Receipt Date: 20220805
  Transmission Date: 20221027
  Serious: Yes (Hospitalization)
  Sender: FDA-Public Use
  Company Number: US-TEVA-2022-US-2062038

PATIENT
  Age: 26 Year
  Sex: Female
  Weight: 63.5 kg

DRUGS (4)
  1. COPAXONE [Suspect]
     Active Substance: GLATIRAMER ACETATE
     Indication: Multiple sclerosis
     Dosage: DURATION : 170 DAYS
     Route: 065
     Dates: start: 20140611, end: 20141128
  2. ORGANIC MULTIVITAMIN [Concomitant]
     Indication: Product used for unknown indication
     Dates: start: 201401
  3. FOLIC ACID [Concomitant]
     Active Substance: FOLIC ACID
     Indication: Product used for unknown indication
     Dates: start: 201405
  4. VITAMIN C [Concomitant]
     Active Substance: ASCORBIC ACID
     Indication: Product used for unknown indication
     Dates: start: 201405

REACTIONS (3)
  - Normal newborn [Unknown]
  - Caesarean section [Recovered/Resolved]
  - Maternal exposure during pregnancy [Unknown]

NARRATIVE: CASE EVENT DATE: 20140403
